FAERS Safety Report 9485696 (Version 2)
Quarter: 2013Q3

REPORT INFORMATION
  Report Type: Report from Study
  Country: GB (occurrence: GB)
  Receive Date: 20130829
  Receipt Date: 20130925
  Transmission Date: 20140515
  Serious: Yes (Death, Hospitalization, Other)
  Sender: FDA-Public Use
  Company Number: GB-AMGEN-GBRCT2013060166

PATIENT
  Age: 52 Year
  Sex: Male

DRUGS (33)
  1. ETANERCEPT [Suspect]
     Indication: RHEUMATOID ARTHRITIS
     Dosage: 50 MG, QWK
     Route: 058
     Dates: start: 20130708, end: 201307
  2. OMEPRAZOLE [Concomitant]
     Indication: OESOPHAGITIS
     Dosage: 240 MG, UNK
     Dates: start: 20070912
  3. OMEPRAZOLE [Concomitant]
     Dosage: 40 MG, 1X/DAY
     Route: 048
     Dates: start: 20130714, end: 20130719
  4. ZOPICLONE [Concomitant]
     Indication: INSOMNIA
     Dosage: UNK
     Dates: start: 20110302
  5. METHOTREXATE [Concomitant]
     Dosage: 25 MG, WEEKLY
     Route: 058
     Dates: start: 20080227
  6. GENTAMYCIN                         /00047102/ [Concomitant]
     Indication: INFECTION
     Dosage: 360 MG, UNK
     Route: 042
     Dates: start: 20130717, end: 20130717
  7. METRONIDAZOLE [Concomitant]
     Indication: INFECTION
     Dosage: 400 MG, 3X/DAY
     Route: 048
     Dates: start: 20130716, end: 20130716
  8. METRONIDAZOLE [Concomitant]
     Dosage: 500 MG, 3X/DAY
     Route: 042
     Dates: start: 20130717, end: 20130720
  9. AUGMENTIN                          /02043401/ [Concomitant]
     Indication: INFECTION
     Dosage: 1.2 G, 3X/DAY
     Route: 042
     Dates: start: 20130717, end: 20130719
  10. MORPHINE [Concomitant]
     Indication: PAIN
     Dosage: 15 MG, UNK
     Route: 042
     Dates: start: 20130717, end: 20130718
  11. FUROSEMIDE [Concomitant]
     Indication: OEDEMA
     Dosage: 40 MG, UNK
     Route: 042
     Dates: start: 20130719, end: 20130719
  12. CYCLIZINE [Concomitant]
     Indication: NAUSEA
     Dosage: 50 MG, 1X/DAY
     Route: 042
     Dates: start: 20130714, end: 20130719
  13. PARACETAMOL [Concomitant]
     Indication: ANALGESIC THERAPY
     Dosage: 1 G, UNK
     Route: 042
     Dates: start: 20130714, end: 20130714
  14. TRAMADOL [Concomitant]
     Indication: ANALGESIC THERAPY
     Dosage: 50 MG, 4X/DAY
     Route: 048
     Dates: start: 20130714, end: 20130716
  15. FENTANYL [Concomitant]
     Indication: ANALGESIC THERAPY
     Dosage: 500 MG, 1X/DAY
     Route: 042
     Dates: start: 20130719, end: 20130720
  16. PROPOFOL [Concomitant]
     Indication: SEDATION
     Dosage: 10 MG, 1X/DAY
     Route: 042
     Dates: start: 20130719, end: 20130720
  17. RANITIDINE [Concomitant]
     Indication: COLITIS
     Dosage: 50 MG, 2X/DAY
     Route: 042
     Dates: start: 20130719, end: 20130720
  18. EPOPROSTENOL [Concomitant]
     Indication: PULMONARY HYPERTENSION
     Dosage: 500 UG, UNK
     Route: 058
     Dates: start: 20130719, end: 20130720
  19. FLUCONAZOLE [Concomitant]
     Indication: INFECTION
     Dosage: 400 MG, 1X/DAY
     Route: 042
     Dates: start: 20130719, end: 20130720
  20. HEPARIN [Concomitant]
     Dosage: (5000 UNIT NOT REPORTED,1 IN 1 D)
     Route: 058
     Dates: start: 20130719, end: 20130720
  21. NORADRENALINE                      /00127501/ [Concomitant]
     Indication: SEPSIS
     Dosage: 8 MG, UNK
     Route: 042
     Dates: start: 20130719, end: 20130720
  22. NORADRENALINE                      /00127501/ [Concomitant]
     Dosage: 32 UG, UNK
     Route: 058
     Dates: start: 20130720, end: 20130720
  23. DALTEPARIN SODIUM [Concomitant]
     Indication: THROMBOSIS PROPHYLAXIS
     Dosage: (5000 UNIT NOT REPORTED,1 IN 1 D)
     Route: 048
     Dates: start: 20130717, end: 20130720
  24. DALTEPARIN SODIUM [Concomitant]
     Indication: PROPHYLAXIS
     Dosage: (5000 UNIT NOT REPORTED,1 IN 1 D)
     Route: 058
     Dates: start: 20130717, end: 20130720
  25. HYDROCORTISONE [Concomitant]
     Indication: COLITIS
     Dosage: 100 MG, 4X/DAY
     Route: 042
     Dates: start: 20130716, end: 20130716
  26. CALCIUM GLUCONATE [Concomitant]
     Indication: HYPOCALCAEMIA
     Dosage: 10 ML, 10%
     Route: 042
     Dates: start: 20130720, end: 20130720
  27. METOCLOPRAMIDE [Concomitant]
     Dosage: 10 MG, 3X/DAY
     Route: 042
     Dates: start: 20130717, end: 20130720
  28. HYDROXYCHLOROQUINE [Concomitant]
     Dosage: 200 MG, 1X/DAY
     Route: 048
     Dates: start: 20080910
  29. LEFLUNOMIDE [Concomitant]
     Dosage: 20 MG, ALTERNATE DAY
     Route: 048
     Dates: start: 20090217
  30. SULFASALAZINE [Concomitant]
     Dosage: 1 G, 2X/DAY
     Route: 048
     Dates: start: 20120418
  31. DEPO-MEDRONE [Concomitant]
     Dosage: 20 MG, UNK
     Route: 014
     Dates: start: 20120226, end: 20120226
  32. TAZOCIN [Concomitant]
     Dosage: UNK
  33. DIAZEPAM [Concomitant]
     Dosage: 2 MG, UNK
     Dates: start: 20130717, end: 20130717

REACTIONS (5)
  - Anastomotic complication [Fatal]
  - Multi-organ failure [Fatal]
  - Colitis ischaemic [Fatal]
  - Peritonitis [Fatal]
  - Gastroenteritis [Not Recovered/Not Resolved]
